FAERS Safety Report 14554770 (Version 1)
Quarter: 2018Q1

REPORT INFORMATION
  Report Type: Report from Study
  Country: FR (occurrence: FR)
  Receive Date: 20180220
  Receipt Date: 20180220
  Transmission Date: 20180509
  Serious: Yes (Death, Life-Threatening, Hospitalization, Other)
  Sender: FDA-Public Use
  Company Number: FR-BAUSCH-BL-2018-004523

PATIENT
  Age: 79 Year
  Sex: Male

DRUGS (10)
  1. GLUCOPHAGE [Concomitant]
     Active Substance: METFORMIN HYDROCHLORIDE
     Indication: DIABETES MELLITUS
     Route: 065
  2. COAPROVEL [Concomitant]
     Active Substance: HYDROCHLOROTHIAZIDE\IRBESARTAN
     Indication: HYPERTENSION
  3. TAHOR [Concomitant]
     Active Substance: ATORVASTATIN CALCIUM
     Indication: HYPERTENSION
     Route: 065
  4. DETICENE [Suspect]
     Active Substance: DACARBAZINE
     Indication: PANCREATIC NEUROENDOCRINE TUMOUR
     Dosage: SOLVENT FOR SOLUTION FOR INJECTION?EVERY CYCLE
     Route: 051
     Dates: start: 20161203, end: 20170109
  5. AMLOR [Concomitant]
     Active Substance: AMLODIPINE BESYLATE
     Indication: HYPERTENSION
     Route: 065
  6. FLUOROURACIL. [Suspect]
     Active Substance: FLUOROURACIL
     Indication: PANCREATIC NEUROENDOCRINE TUMOUR
     Dosage: EVERY CYCLE
     Route: 065
     Dates: start: 20161203, end: 20170109
  7. LANTUS [Concomitant]
     Active Substance: INSULIN GLARGINE
     Indication: DIABETES MELLITUS
     Route: 065
  8. AMIODARONE [Concomitant]
     Active Substance: AMIODARONE
     Indication: ARRHYTHMIA
     Route: 065
  9. INEXIUM [Concomitant]
     Active Substance: ESOMEPRAZOLE
     Indication: GASTROOESOPHAGEAL REFLUX DISEASE
     Route: 065
  10. TARDYFERON [Concomitant]
     Active Substance: FERROUS SULFATE
     Indication: IRON DEFICIENCY
     Route: 065
     Dates: start: 2017

REACTIONS (11)
  - Fall [Recovered/Resolved]
  - General physical health deterioration [Fatal]
  - General physical health deterioration [Recovered/Resolved]
  - Ascites [Fatal]
  - Decreased appetite [Recovering/Resolving]
  - Muscular weakness [Recovering/Resolving]
  - Hypoglycaemia [Recovered/Resolved]
  - Hyperleukocytosis [Recovered/Resolved]
  - Asthenia [Recovering/Resolving]
  - Anaemia [Recovering/Resolving]
  - Neoplasm progression [Fatal]

NARRATIVE: CASE EVENT DATE: 20161203
